FAERS Safety Report 4650842-2 (Version None)
Quarter: 2005Q2

REPORT INFORMATION
  Report Type: 
  Country: None (occurrence: None)
  Receive Date: 20050503
  Receipt Date: 20050412
  Transmission Date: 20051028
  Serious: Yes (Other)
  Sender: FDA-Public Use
  Company Number: HQWYE012913APR05

PATIENT
  Age: 51 Year
  Sex: Female
  Weight: 72 kg

DRUGS (11)
  1. ENBREL [Suspect]
     Indication: DRUG USE FOR UNKNOWN INDICATION
     Dosage: NOT PROVIDED
     Route: 058
     Dates: start: 20041130
  2. ENBREL [Suspect]
     Dosage: NOT PROVIDED
  3. ENBREL [Suspect]
     Dosage: NOT PROVIDED
     Dates: end: 20050225
  4. ALENDRONATE SODIUM [Suspect]
  5. ASPIRIN [Suspect]
  6. FLUOXETINE HCL [Suspect]
  7. SPIRICORT [Suspect]
  8. FOSAMAX [Concomitant]
  9. METHOTREXATE [Concomitant]
  10. VITAMINS [Concomitant]
  11. FOLIC ACID [Concomitant]

REACTIONS (15)
  - ABDOMINAL PAIN UPPER [None]
  - ALANINE AMINOTRANSFERASE INCREASED [None]
  - ASPARTATE AMINOTRANSFERASE INCREASED [None]
  - BLOOD ALKALINE PHOSPHATASE INCREASED [None]
  - BLOOD BILIRUBIN INCREASED [None]
  - C-REACTIVE PROTEIN INCREASED [None]
  - CONDITION AGGRAVATED [None]
  - GAMMA-GLUTAMYLTRANSFERASE INCREASED [None]
  - GASTROOESOPHAGEAL SPHINCTER INSUFFICIENCY [None]
  - HEPATIC ENZYME INCREASED [None]
  - INFLUENZA LIKE ILLNESS [None]
  - NEUTROPHIL COUNT INCREASED [None]
  - T-LYMPHOCYTE COUNT INCREASED [None]
  - TAKAYASU'S ARTERITIS [None]
  - WEIGHT INCREASED [None]
